FAERS Safety Report 18118617 (Version 6)
Quarter: 2020Q3

REPORT INFORMATION
  Report Type: Spontaneous
  Country: US (occurrence: US)
  Receive Date: 20200806
  Receipt Date: 20200901
  Transmission Date: 20201103
  Serious: No
  Sender: FDA-Public Use
  Company Number: US-PFIZER INC-2020007413

PATIENT
  Age: 68 Year
  Sex: Female
  Weight: 150 kg

DRUGS (1)
  1. TOVIAZ [Suspect]
     Active Substance: FESOTERODINE FUMARATE
     Indication: HYPERTONIC BLADDER
     Dosage: 8 MG, 1X/DAY
     Route: 048

REACTIONS (4)
  - Hypokinesia [Unknown]
  - Muscle spasms [Unknown]
  - Product dose omission issue [Unknown]
  - Pain [Unknown]
